FAERS Safety Report 4547877-7 (Version None)
Quarter: 2005Q1

REPORT INFORMATION
  Report Type: 
  Country: None (occurrence: None)
  Receive Date: 20050110
  Receipt Date: 20041228
  Transmission Date: 20050727
  Serious: Yes (Other)
  Sender: FDA-Public Use
  Company Number: JP-JNJFOC-20041206972

PATIENT
  Sex: Female
  Weight: 38 kg

DRUGS (11)
  1. REMICADE [Suspect]
     Route: 042
  2. REMICADE [Suspect]
     Route: 042
  3. REMICADE [Suspect]
     Indication: CROHN'S DISEASE
     Route: 042
  4. PENTASA [Concomitant]
     Indication: CROHN'S DISEASE
     Route: 049
  5. BIOFERMIN [Concomitant]
     Route: 049
  6. BIOFERMIN [Concomitant]
     Route: 049
  7. BIOFERMIN [Concomitant]
     Indication: CROHN'S DISEASE
     Route: 049
  8. LAC B [Concomitant]
     Indication: CROHN'S DISEASE
     Route: 049
  9. SELBEX [Concomitant]
  10. LANSOPRAZOLE [Concomitant]
     Route: 049
  11. ENTERAL NUTRITION [Concomitant]

REACTIONS (3)
  - MALIGNANT HYDATIDIFORM MOLE [None]
  - METASTASES TO LUNG [None]
  - UNEVALUABLE EVENT [None]
